FAERS Safety Report 4557324-7 (Version None)
Quarter: 2005Q1

REPORT INFORMATION
  Report Type: 
  Country: None (occurrence: None)
  Receive Date: 20050119
  Receipt Date: 20050119
  Transmission Date: 20050727
  Serious: Yes (Death)
  Sender: FDA-Public Use
  Company Number: None

PATIENT
  Age: 78 Year
  Sex: Male
  Weight: 79.8331 kg

DRUGS (12)
  1. METHOTREXATE [Suspect]
     Indication: RHEUMATOID ARTHRITIS
     Dosage: 15MG   WEEK   ORAL
     Route: 048
     Dates: start: 20040713, end: 20040926
  2. ENBREL [Suspect]
     Indication: RHEUMATOID ARTHRITIS
     Dosage: 50MG   WEEK   SUBCUTANEO
     Route: 058
     Dates: start: 20040713, end: 20040926
  3. GLUCOPHAGE [Concomitant]
  4. GLYBURIDE [Concomitant]
  5. ENALAPRIL [Concomitant]
  6. ZOCOR [Concomitant]
  7. GEMFIBROZIL [Concomitant]
  8. ACTONEL [Concomitant]
  9. ASPIRIN [Concomitant]
  10. OMEPRAZOLE [Concomitant]
  11. PREDNISONE [Concomitant]
  12. CALCIUM GLUCONATE [Concomitant]

REACTIONS (13)
  - ANAEMIA [None]
  - CHILLS [None]
  - DYSPNOEA [None]
  - FATIGUE [None]
  - HYPERHIDROSIS [None]
  - IMMUNOSUPPRESSION [None]
  - LUNG INFILTRATION [None]
  - MYOCARDIAL INFARCTION [None]
  - OXYGEN SATURATION DECREASED [None]
  - PULMONARY EMBOLISM [None]
  - RESPIRATORY DISTRESS [None]
  - RESPIRATORY FAILURE [None]
  - VASCULAR PSEUDOANEURYSM [None]
